FAERS Safety Report 19265884 (Version 1)
Quarter: 2021Q2

REPORT INFORMATION
  Report Type: Spontaneous
  Country: US (occurrence: US)
  Receive Date: 20210517
  Receipt Date: 20210517
  Transmission Date: 20210717
  Serious: No
  Sender: FDA-Public Use
  Company Number: US-ORGANON-O2105USA000172

PATIENT
  Age: 31 Year
  Sex: Female

DRUGS (10)
  1. GANIRELIX ACETATE INJECTION [Suspect]
     Active Substance: GANIRELIX ACETATE
     Indication: INFERTILITY FEMALE
     Dosage: 250 MICROGRAM, DAILY
     Route: 058
     Dates: start: 20180526
  2. MENOPUR [Concomitant]
     Active Substance: FOLLITROPIN\LUTEINIZING HORMONE
     Dosage: UNK
  3. FOLLISTIM AQ [Suspect]
     Active Substance: FOLLITROPIN
     Indication: INFERTILITY FEMALE
     Dosage: STRENGTH: 600 IU/0.72 ML, 175 IU EVERY EVENING
     Route: 058
     Dates: start: 20180526
  4. NOVAREL [Concomitant]
     Active Substance: CHORIOGONADOTROPIN ALFA
     Dosage: UNK
  5. ENDOMETRIN [Concomitant]
     Active Substance: PROGESTERONE
  6. VITAMIN D NOS [Concomitant]
     Active Substance: VITAMIN D NOS
  7. PRENATAL VITAMINS [MINERALS NOS;VITAMINS NOS] [Concomitant]
     Active Substance: MINERALS\VITAMINS
  8. LEUPROLIDE [LEUPRORELIN] [Concomitant]
     Active Substance: LEUPROLIDE ACETATE
  9. HCG [Concomitant]
     Active Substance: GONADOTROPHIN, CHORIONIC
  10. CRINONE [Concomitant]
     Active Substance: PROGESTERONE

REACTIONS (2)
  - Vulvovaginal discomfort [Unknown]
  - Vulvovaginal erythema [Unknown]

NARRATIVE: CASE EVENT DATE: 20190624
